FAERS Safety Report 8140931-2 (Version None)
Quarter: 2012Q1

REPORT INFORMATION
  Report Type: 
  Country: None (occurrence: None)
  Receive Date: 20120216
  Receipt Date: 20120208
  Transmission Date: 20120608
  Serious: Yes (Hospitalization, Other)
  Sender: FDA-Public Use
  Company Number: JP-SHIRE-ALL1-2012-00806

PATIENT
  Age: 74 Year
  Sex: Male

DRUGS (1)
  1. FOSRENOL [Suspect]
     Indication: HYPERPHOSPHATAEMIA
     Dosage: UNK MG, OTHER (250-500 MG DAILY DOSE, TAKEN IMMEDIATELY AFTER MEALS)
     Route: 048

REACTIONS (3)
  - ASPIRATION [None]
  - FEMUR FRACTURE [None]
  - WRONG TECHNIQUE IN DRUG USAGE PROCESS [None]
